FAERS Safety Report 9407467 (Version 1)
Quarter: 2013Q3

REPORT INFORMATION
  Report Type: Spontaneous
  Country: US (occurrence: None)
  Receive Date: 20130717
  Receipt Date: 20130717
  Transmission Date: 20140515
  Serious: No
  Sender: FDA-Public Use
  Company Number: None

PATIENT
  Age: 63 Year
  Sex: Male

DRUGS (1)
  1. XTANDI [Suspect]
     Indication: PROSTATE CANCER
     Dosage: 4 DOSE
     Route: 048
     Dates: start: 20130215, end: 20130711

REACTIONS (2)
  - Drug ineffective [None]
  - Prostatic specific antigen increased [None]
